FAERS Safety Report 9344013 (Version 2)
Quarter: 2013Q3

REPORT INFORMATION
  Report Type: Spontaneous
  Country: IT (occurrence: None)
  Receive Date: 20130610
  Receipt Date: 20130712
  Transmission Date: 20140515
  Serious: Yes (Other)
  Sender: FDA-Public Use
  Company Number: 2013AP005749

PATIENT
  Age: 66 Year
  Sex: Male

DRUGS (10)
  1. LEVOFLOXACIN (LEVOFLOXACIN) [Suspect]
     Indication: DIABETIC FOOT INFECTION
     Route: 048
     Dates: start: 20120727, end: 20130527
  2. WARFARIN (WARFARIN) [Suspect]
     Indication: ARRHYTHMIA PROPHYLAXIS
     Route: 048
     Dates: start: 20120527, end: 20130527
  3. TORVAST (ATORVASTATIN CALCIUM) [Concomitant]
  4. TARGIN (TARGIN) [Concomitant]
  5. TRIATEC   /00885601/  (RAMIPRIL) [Concomitant]
  6. CARDIOASPIRIN (ACETYLSALICYLIC ACID) [Concomitant]
  7. MEPRAL  /00661201/  (OMEPRAZOLE) [Concomitant]
  8. AMIODARONE (AMIODARONE) [Concomitant]
  9. METFORMIN (METFORMIN) [Concomitant]
  10. BISOPROLOL HEMIFUMARATE (BISOPROLOL HEMIFUMARATE) [Concomitant]

REACTIONS (5)
  - Overdose [None]
  - Renal failure acute [None]
  - International normalised ratio abnormal [None]
  - Drug abuse [None]
  - Drug interaction [None]
